FAERS Safety Report 4373575-9 (Version None)
Quarter: 2004Q1

REPORT INFORMATION
  Report Type: 
  Country: None (occurrence: None)
  Receive Date: 20040305
  Receipt Date: 20040202
  Transmission Date: 20041129
  Serious: Yes (Other)
  Sender: FDA-Public Use
  Company Number: 2004UW01710

PATIENT
  Age: 60 Year
  Sex: Male
  Weight: 87.0906 kg

DRUGS (13)
  1. CRESTOR [Suspect]
     Indication: BLOOD CHOLESTEROL INCREASED
     Dosage: 10 MG PO
     Route: 048
  2. CRESTOR [Suspect]
     Indication: BLOOD CHOLESTEROL INCREASED
     Dosage: 20 MG PO
     Route: 048
  3. CRESTOR [Suspect]
     Indication: BLOOD CHOLESTEROL INCREASED
     Dosage: 10 MG PO
     Route: 048
  4. CLONOPIN [Concomitant]
  5. DEPAKOTE [Concomitant]
  6. LAMICTAL [Concomitant]
  7. LANOXIN [Concomitant]
  8. LASIX [Concomitant]
  9. PAXIL [Concomitant]
  10. SOTALOL HCL [Concomitant]
  11. VASOTEC [Concomitant]
  12. WELLBUTRIN [Concomitant]
  13. SONATA [Concomitant]

REACTIONS (1)
  - FATIGUE [None]
